FAERS Safety Report 9912993 (Version 1)
Quarter: 2014Q1

REPORT INFORMATION
  Report Type: Spontaneous
  Country: US (occurrence: None)
  Receive Date: 20140218
  Receipt Date: 20140218
  Transmission Date: 20141002
  Serious: Yes (Life-Threatening, Hospitalization)
  Sender: FDA-Public Use
  Company Number: None

PATIENT
  Sex: Male

DRUGS (1)
  1. TESTIM [Suspect]

REACTIONS (6)
  - Thrombosis [None]
  - Migraine [None]
  - Amnesia [None]
  - Dizziness [None]
  - Tinnitus [None]
  - Loss of employment [None]
